FAERS Safety Report 8992679 (Version 1)
Quarter: 2013Q1

REPORT INFORMATION
  Report Type: Spontaneous
  Country: US (occurrence: US)
  Receive Date: 20130101
  Receipt Date: 20130101
  Transmission Date: 20140127
  Serious: Yes (Other)
  Sender: FDA-Public Use
  Company Number: US-BRISTOL-MYERS SQUIBB COMPANY-17235292

PATIENT
  Age: 58 Year
  Sex: Female

DRUGS (1)
  1. ABATACEPT SUBQ INJECTION 125MG/ML [Suspect]
     Dosage: DATE OF LAST INJECTION:  15DEC2012?OFF FOR 6 WEEKS

REACTIONS (1)
  - Cubital tunnel syndrome [Unknown]
